FAERS Safety Report 8133948-5 (Version None)
Quarter: 2012Q1

REPORT INFORMATION
  Report Type: 
  Country: None (occurrence: None)
  Receive Date: 20120213
  Receipt Date: 20120203
  Transmission Date: 20120608
  Serious: Yes (Hospitalization)
  Sender: FDA-Public Use
  Company Number: IT-ASTRAZENECA-2012SE07681

PATIENT
  Age: 62 Year
  Sex: Female

DRUGS (8)
  1. ZANEDIP (LERCANIDIPINE) [Concomitant]
  2. ARANESP [Concomitant]
  3. TENORMIN [Concomitant]
  4. LASIX [Concomitant]
  5. CALCIUM CARBONATE [Concomitant]
  6. ROPIVACAINE HYDROCHLORIDE [Suspect]
     Indication: LOCAL ANAESTHESIA
     Route: 042
     Dates: start: 20110627, end: 20110627
  7. ROSUVASTATIN [Concomitant]
  8. MEPIVACAINE HYDROCHLORIDE [Suspect]
     Indication: LOCAL ANAESTHESIA
     Route: 042
     Dates: start: 20110627, end: 20110627

REACTIONS (1)
  - AGITATION [None]
